FAERS Safety Report 8104686-X (Version None)
Quarter: 2012Q1

REPORT INFORMATION
  Report Type: 
  Country: None (occurrence: None)
  Receive Date: 20120201
  Receipt Date: 20120124
  Transmission Date: 20120608
  Serious: Yes (Other)
  Sender: FDA-Public Use
  Company Number: US-PFIZER INC-2011296347

PATIENT
  Sex: Female

DRUGS (1)
  1. LATANOPROST [Suspect]
     Dosage: 1 DROP IN EACH EYE IN THE EVENING
     Route: 047
     Dates: start: 20110908, end: 20110913

REACTIONS (4)
  - PRODUCT SUBSTITUTION ISSUE [None]
  - VISION BLURRED [None]
  - EYE PRURITUS [None]
  - VISUAL IMPAIRMENT [None]
